FAERS Safety Report 9142342 (Version 2)
Quarter: 2013Q1

REPORT INFORMATION
  Report Type: Spontaneous
  Country: US (occurrence: US)
  Receive Date: 20130306
  Receipt Date: 20130325
  Transmission Date: 20140127
  Serious: No
  Sender: FDA-Public Use
  Company Number: US-009507513-1303USA000322

PATIENT
  Age: 86 Year
  Sex: Male

DRUGS (10)
  1. NASONEX [Suspect]
     Indication: NASAL CONGESTION
     Dosage: 50 MICROGRAM, UNK
     Route: 045
     Dates: start: 20130227
  2. MONTELUKAST SODIUM [Concomitant]
     Route: 048
  3. LIPITOR [Concomitant]
  4. ZOLOFT [Concomitant]
  5. SLO NIACIN [Concomitant]
  6. PROTONIX [Concomitant]
  7. COREG [Concomitant]
  8. ECOTRIN [Concomitant]
  9. VASOTEC [Concomitant]
  10. LORATADINE [Concomitant]
     Route: 048

REACTIONS (1)
  - Epistaxis [Unknown]
